FAERS Safety Report 6932509-0 (Version None)
Quarter: 2010Q3

REPORT INFORMATION
  Report Type: 
  Country: None (occurrence: None)
  Receive Date: 20100819
  Receipt Date: 20100806
  Transmission Date: 20110219
  Serious: Yes (Hospitalization)
  Sender: FDA-Public Use
  Company Number: CA-ELI_LILLY_AND_COMPANY-CA201006006625

PATIENT
  Sex: Female
  Weight: 81.633 kg

DRUGS (15)
  1. PROZAC [Suspect]
     Indication: DEPRESSION
     Dosage: 80 MG, UNKNOWN
     Route: 065
     Dates: start: 20091104, end: 20100605
  2. CLONAZEPAM [Concomitant]
     Dosage: 0.5 MG, EACH EVENING
  3. NEXIUM [Concomitant]
     Dosage: 20 MG, DAILY (1/D)
  4. NEXIUM [Concomitant]
     Dosage: 20 MG, 2/D
  5. TAMOXIFEN CITRATE [Concomitant]
     Dosage: 20 MG, UNK
  6. DIOVAN [Concomitant]
     Dosage: 320 MG, UNK
  7. DEXEDRINE [Concomitant]
     Dosage: 10 MG, AS NEEDED
  8. OXA [Concomitant]
     Dosage: 1 D/F, 2/D
  9. GABAPENTIN [Concomitant]
     Dosage: 900 MG, EACH EVENING
  10. GABAPENTIN [Concomitant]
     Dosage: 600 MG, EACH EVENING
  11. ATIVAN [Concomitant]
     Dosage: 1 MG, AS NEEDED
  12. ZOPICLONE [Concomitant]
     Dosage: 7.5 MG, AS NEEDED
  13. VENTILAN [Concomitant]
     Dosage: 1 D/F, AS NEEDED
  14. ROPINIROLE HYDROCHLORIDE [Concomitant]
     Dosage: 0.25 MG, EACH EVENING
  15. HYDROCHLOROTHIAZIDE [Concomitant]
     Indication: HYPERTENSION

REACTIONS (7)
  - DIARRHOEA [None]
  - ELECTROCARDIOGRAM QT PROLONGED [None]
  - GASTRITIS [None]
  - NAUSEA [None]
  - OESOPHAGEAL STENOSIS [None]
  - TORSADE DE POINTES [None]
  - WEIGHT DECREASED [None]
